FAERS Safety Report 11134605 (Version 2)
Quarter: 2015Q2

REPORT INFORMATION
  Report Type: Report from Study
  Country: BR (occurrence: BR)
  Receive Date: 20150525
  Receipt Date: 20150531
  Transmission Date: 20150821
  Serious: Yes (Other)
  Sender: FDA-Public Use
  Company Number: PHHY2015BR059223

PATIENT
  Sex: Female
  Weight: 84 kg

DRUGS (1)
  1. DIOVAN HCT [Suspect]
     Active Substance: HYDROCHLOROTHIAZIDE\VALSARTAN
     Indication: HYPERTENSION
     Dosage: 1 DF, QHS (AT NIGHT)
     Route: 065
     Dates: start: 20150414

REACTIONS (5)
  - Malaise [Unknown]
  - Insomnia [Unknown]
  - Blood pressure increased [Unknown]
  - Vomiting [Unknown]
  - Headache [Unknown]

NARRATIVE: CASE EVENT DATE: 20150511
